FAERS Safety Report 25032558 (Version 3)
Quarter: 2025Q2

REPORT INFORMATION
  Report Type: Report from Study
  Country: US (occurrence: US)
  Receive Date: 20250303
  Receipt Date: 20250531
  Transmission Date: 20250717
  Serious: Yes (Other)
  Sender: STEMLINE THERAPEUTICS
  Company Number: US-STEMLINE THERAPEUTICS B.V.-2024-STML-US006836

PATIENT

DRUGS (4)
  1. ORSERDU [Suspect]
     Active Substance: ELACESTRANT
     Indication: Breast cancer
     Dosage: UNK, DAILY
     Route: 065
     Dates: start: 20240611
  2. ORSERDU [Suspect]
     Active Substance: ELACESTRANT
     Dosage: 345 MG, DAILY
     Route: 048
     Dates: start: 20241128, end: 20241202
  3. ORSERDU [Suspect]
     Active Substance: ELACESTRANT
     Dosage: UNK, DAILY
     Route: 065
     Dates: start: 20250102
  4. ORSERDU [Suspect]
     Active Substance: ELACESTRANT
     Dosage: UNK, DAILY
     Route: 065
     Dates: start: 20250228

REACTIONS (16)
  - Neuropathy peripheral [Unknown]
  - Tremor [Unknown]
  - Epistaxis [Unknown]
  - Feeling cold [Unknown]
  - Feeling abnormal [Unknown]
  - Lethargy [Not Recovered/Not Resolved]
  - Thinking abnormal [Not Recovered/Not Resolved]
  - Vertigo [Not Recovered/Not Resolved]
  - Myalgia [Not Recovered/Not Resolved]
  - Bone pain [Not Recovered/Not Resolved]
  - Gastrooesophageal reflux disease [Unknown]
  - Asthenia [Unknown]
  - Dizziness [Unknown]
  - Headache [Not Recovered/Not Resolved]
  - Fatigue [Not Recovered/Not Resolved]
  - Product use issue [Unknown]

NARRATIVE: CASE EVENT DATE: 20240101
